FAERS Safety Report 8479475-7 (Version None)
Quarter: 2012Q2

REPORT INFORMATION
  Report Type: 
  Country: None (occurrence: None)
  Receive Date: 20120629
  Receipt Date: 20120622
  Transmission Date: 20120825
  Serious: Yes (Other)
  Sender: FDA-Public Use
  Company Number: AU-PFIZER INC-2012117174

PATIENT
  Sex: Male
  Weight: 180 kg

DRUGS (2)
  1. LIDOCAINE [Suspect]
     Indication: LOCAL ANAESTHESIA
     Dosage: 1%, 0.5ML
     Route: 023
  2. HEPARIN SODIUM [Concomitant]
     Indication: ANTICOAGULANT THERAPY
     Dosage: 4000 UNITS LOADING AND 2000 UNITS INFUSING
     Route: 042

REACTIONS (2)
  - THROMBOSIS IN DEVICE [None]
  - WRONG DRUG ADMINISTERED [None]
